FAERS Safety Report 5281763-2 (Version None)
Quarter: 2007Q1

REPORT INFORMATION
  Report Type: 
  Country: None (occurrence: None)
  Receive Date: 20070330
  Receipt Date: 20070322
  Transmission Date: 20070707
  Serious: Yes (Hospitalization)
  Sender: FDA-Public Use
  Company Number: FR-GLAXOSMITHKLINE-B0463563A

PATIENT
  Age: 72 Year
  Sex: Female
  Weight: 67 kg

DRUGS (1)
  1. ARIXTRA [Suspect]
     Indication: PULMONARY EMBOLISM
     Route: 058
     Dates: start: 20070206, end: 20070208

REACTIONS (3)
  - ANAEMIA [None]
  - HAEMATOMA [None]
  - MUSCLE HAEMORRHAGE [None]
